FAERS Safety Report 23107318 (Version 1)
Quarter: 2023Q4

REPORT INFORMATION
  Report Type: Spontaneous
  Country: SE (occurrence: SE)
  Receive Date: 20231026
  Receipt Date: 20231026
  Transmission Date: 20240110
  Serious: Yes (Life-Threatening, Hospitalization, Other)
  Sender: FDA-Public Use
  Company Number: SE-RECORDATI-2023007197

PATIENT

DRUGS (4)
  1. METOPROLOL SUCCINATE [Suspect]
     Active Substance: METOPROLOL SUCCINATE
     Indication: Hypotension
     Dosage: 50 MG PER DAY IN THE MORNING WITH BREAKFAST
     Dates: start: 19991211, end: 20000223
  2. METOPROLOL SUCCINATE [Suspect]
     Active Substance: METOPROLOL SUCCINATE
     Dosage: 50 MG PER DAY
     Dates: start: 20000309, end: 2008
  3. RISPERDAL [Concomitant]
     Active Substance: RISPERIDONE
     Indication: Product used for unknown indication
     Dosage: 1 MG X 2
  4. ZYPREXA [Concomitant]
     Active Substance: OLANZAPINE
     Indication: Product used for unknown indication
     Dosage: UNK

REACTIONS (11)
  - Depersonalisation/derealisation disorder [Unknown]
  - Epistaxis [Unknown]
  - Psychotic disorder [Unknown]
  - Myocardial infarction [Unknown]
  - Pruritus [Not Recovered/Not Resolved]
  - Peripheral coldness [Unknown]
  - Fatigue [Unknown]
  - Nightmare [Unknown]
  - Hallucination [Unknown]
  - Amnesia [Unknown]
  - Off label use [Recovered/Resolved]

NARRATIVE: CASE EVENT DATE: 19991212
